FAERS Safety Report 5731429-7 (Version None)
Quarter: 2008Q2

REPORT INFORMATION
  Report Type: 
  Country: None (occurrence: None)
  Receive Date: 20080508
  Receipt Date: 20080428
  Transmission Date: 20081010
  Serious: Yes (Other)
  Sender: FDA-Public Use
  Company Number: US-WYE-H03824308

PATIENT
  Age: 48 Year
  Sex: Female
  Weight: 81.04 kg

DRUGS (2)
  1. TORISEL [Suspect]
     Route: 041
     Dates: start: 20071121, end: 20071121
  2. METRONIDAZOLE HCL [Interacting]
     Route: 048

REACTIONS (8)
  - CHEST DISCOMFORT [None]
  - DEFAECATION URGENCY [None]
  - DRUG INTERACTION [None]
  - EAR CONGESTION [None]
  - ERYTHEMA [None]
  - FLUSHING [None]
  - HYPERSENSITIVITY [None]
  - THROAT TIGHTNESS [None]
